FAERS Safety Report 16819385 (Version 1)
Quarter: 2019Q3

REPORT INFORMATION
  Report Type: Spontaneous
  Country: US (occurrence: US)
  Receive Date: 20190917
  Receipt Date: 20190917
  Transmission Date: 20191005
  Serious: Yes (Hospitalization)
  Sender: FDA-Public Use
  Company Number: US-TEVA-2019-US-1108596

PATIENT
  Age: 72 Year
  Sex: Female

DRUGS (8)
  1. NIFEDIPINE XL [Interacting]
     Active Substance: NIFEDIPINE
     Dosage: 60 MILLIGRAM DAILY;
     Route: 065
  2. PAROXETINE. [Concomitant]
     Active Substance: PAROXETINE
     Dosage: 20 MILLIGRAM DAILY;
     Route: 065
  3. INSULIN LISPRO PROTAMINE/INSULIN LISPRO [Concomitant]
     Dosage: 40 UNITS EVERY MORNING AND 60 UNITS EVERY EVENING
     Route: 065
  4. METOPROLOL. [Interacting]
     Active Substance: METOPROLOL
     Dosage: 50 MILLIGRAM DAILY;
     Route: 065
  5. LOSARTAN. [Concomitant]
     Active Substance: LOSARTAN
     Dosage: 100 MILLIGRAM DAILY;
     Route: 065
  6. CLARITHROMYCIN. [Suspect]
     Active Substance: CLARITHROMYCIN
     Indication: BRONCHITIS
     Dosage: 1000 MILLIGRAM DAILY;
     Route: 065
  7. ATORVASTATIN [Concomitant]
     Active Substance: ATORVASTATIN
     Route: 065
  8. PREDNISONE. [Concomitant]
     Active Substance: PREDNISONE
     Indication: BRONCHITIS
     Dosage: 80 MILLIGRAM DAILY;
     Route: 065

REACTIONS (9)
  - Cardiac arrest [Recovered/Resolved]
  - Pulse absent [Recovered/Resolved]
  - Acidosis [Recovered/Resolved]
  - Rebound tachycardia [Recovered/Resolved]
  - Drug interaction [Unknown]
  - Bradycardia [Recovered/Resolved]
  - Hypoperfusion [Recovered/Resolved]
  - Hypovolaemic shock [Recovered/Resolved]
  - Hypotension [Recovered/Resolved]
